FAERS Safety Report 7365994-3 (Version None)
Quarter: 2011Q1

REPORT INFORMATION
  Report Type: 
  Country: None (occurrence: None)
  Receive Date: 20110311
  Receipt Date: 20110223
  Transmission Date: 20110831
  Serious: Yes (Other)
  Sender: FDA-Public Use
  Company Number: 2011SP008763

PATIENT
  Age: 73 Year
  Sex: Female

DRUGS (4)
  1. RINDERON A (BETAMETHASON SODIUM PHOSPHATE/FRADIOMYCIN SULFATE /0020360 [Suspect]
     Indication: GLAUCOMA
  2. RINDERON A (BETAMETHASON SODIUM PHOSPHATE/FRADIOMYCIN SULFATE /0020360 [Suspect]
     Indication: UVEITIS
  3. TIMOLOL MALEATE [Suspect]
     Indication: UVEITIS
  4. TIMOLOL MALEATE [Suspect]
     Indication: GLAUCOMA

REACTIONS (2)
  - KERATOPATHY [None]
  - TOXICITY TO VARIOUS AGENTS [None]
